FAERS Safety Report 7570961-0 (Version None)
Quarter: 2011Q2

REPORT INFORMATION
  Report Type: 
  Country: None (occurrence: None)
  Receive Date: 20110622
  Receipt Date: 20110622
  Transmission Date: 20111010
  Serious: Yes (Life-Threatening, Other)
  Sender: FDA-Public Use
  Company Number: None

PATIENT
  Sex: Female
  Weight: 67.1324 kg

DRUGS (1)
  1. RAPAFLO [Suspect]
     Indication: URETHRAL STENOSIS
     Dosage: 1 W/ FOOD SAME TIME
     Dates: start: 20110602

REACTIONS (2)
  - PAIN [None]
  - DRUG EFFECT DECREASED [None]
